FAERS Safety Report 6822015-6 (Version None)
Quarter: 2010Q3

REPORT INFORMATION
  Report Type: 
  Country: None (occurrence: None)
  Receive Date: 20100707
  Receipt Date: 20100707
  Transmission Date: 20110219
  Serious: Yes (Hospitalization)
  Sender: FDA-Public Use
  Company Number: None

PATIENT
  Sex: Male
  Weight: 101 kg

DRUGS (3)
  1. METHOTREXATE [Suspect]
     Dosage: 1650 MG
  2. PEG-L ASPARAGINASE (K-H) [Suspect]
     Dosage: 11000 MG
  3. VINCRISTINE SULFATE [Suspect]
     Dosage: 10 MG

REACTIONS (4)
  - MUCOSAL INFLAMMATION [None]
  - PHARYNGEAL OEDEMA [None]
  - SWOLLEN TONGUE [None]
  - THERAPEUTIC AGENT TOXICITY [None]
